FAERS Safety Report 6193212-0 (Version None)
Quarter: 2009Q2

REPORT INFORMATION
  Report Type: 
  Country: None (occurrence: None)
  Receive Date: 20090518
  Receipt Date: 20090511
  Transmission Date: 20091009
  Serious: Yes (Other)
  Sender: FDA-Public Use
  Company Number: A0778958A

PATIENT
  Age: 63 Year
  Sex: Female

DRUGS (5)
  1. TYKERB [Suspect]
     Indication: BREAST CANCER
     Dosage: 1250MG PER DAY
     Route: 048
     Dates: start: 20090410, end: 20090430
  2. CENTRUM SILVER [Concomitant]
  3. FISH OIL [Concomitant]
  4. BENADRYL [Concomitant]
  5. XELODA [Concomitant]

REACTIONS (5)
  - DERMATITIS ACNEIFORM [None]
  - DIARRHOEA [None]
  - DYSPHAGIA [None]
  - HAEMORRHAGE [None]
  - SKIN LACERATION [None]
